FAERS Safety Report 15133862 (Version 1)
Quarter: 2018Q3

REPORT INFORMATION
  Report Type: Spontaneous
  Country: US (occurrence: US)
  Receive Date: 20180712
  Receipt Date: 20180712
  Transmission Date: 20181010
  Serious: Yes (Other)
  Sender: FDA-Public Use
  Company Number: US-BAYER-2018-127900

PATIENT
  Age: 80 Year
  Sex: Male

DRUGS (3)
  1. HUMIRA [Concomitant]
     Active Substance: ADALIMUMAB
     Indication: ANKYLOSING SPONDYLITIS
     Dosage: 40 MG, Q2WK (1 IN 2 WK)
     Dates: start: 20170909, end: 201801
  2. ALEVE [Suspect]
     Active Substance: NAPROXEN SODIUM
     Route: 058
  3. HUMIRA [Concomitant]
     Active Substance: ADALIMUMAB
     Indication: ANKYLOSING SPONDYLITIS
     Dosage: 40 MG, Q2WK (1 IN 2 WK)
     Dates: start: 201806

REACTIONS (12)
  - Renal disorder [Recovering/Resolving]
  - Urinary retention [Unknown]
  - Neck pain [Unknown]
  - Dysstasia [Recovering/Resolving]
  - Oropharyngeal pain [Unknown]
  - Tendonitis [Recovering/Resolving]
  - Joint range of motion decreased [Recovering/Resolving]
  - Fatigue [Recovering/Resolving]
  - Musculoskeletal stiffness [Not Recovered/Not Resolved]
  - Paranasal sinus hypersecretion [Unknown]
  - Back pain [Unknown]
  - Arthralgia [Recovering/Resolving]

NARRATIVE: CASE EVENT DATE: 2017
